FAERS Safety Report 14110609 (Version 5)
Quarter: 2019Q4

REPORT INFORMATION
  Report Type: Report from Study
  Country: CA (occurrence: CA)
  Receive Date: 20171020
  Receipt Date: 20191206
  Transmission Date: 20200122
  Serious: Yes (Hospitalization, Other)
  Sender: FDA-Public Use
  Company Number: PHHY2016CA021017

PATIENT
  Age: 71 Year
  Sex: Male

DRUGS (7)
  1. CORTISONE [Concomitant]
     Active Substance: CORTISONE
     Indication: PRODUCT USED FOR UNKNOWN INDICATION
     Route: 065
  2. BISOPROLOL [Concomitant]
     Active Substance: BISOPROLOL
     Indication: TACHYCARDIA
     Dosage: 5 MG, QD
     Route: 065
  3. SANDOSTATIN LAR DEPOT [Suspect]
     Active Substance: OCTREOTIDE ACETATE
     Indication: CARCINOID TUMOUR
     Dosage: 30 MG, QMO (EVERY 4 WEEKS)
     Route: 030
     Dates: start: 20160304
  4. SANDOSTATIN [Suspect]
     Active Substance: OCTREOTIDE ACETATE
     Dosage: 50 UG, TID (FOR TWO WEEKS)
     Route: 058
     Dates: start: 20160213, end: 2016
  5. IMOVANE [Concomitant]
     Active Substance: ZOPICLONE
     Indication: PRODUCT USED FOR UNKNOWN INDICATION
     Dosage: 5 UNK, 1 TO 1/2 AT NIGHT
     Route: 048
  6. AFINITOR [Concomitant]
     Active Substance: EVEROLIMUS
     Indication: PRODUCT USED FOR UNKNOWN INDICATION
     Dosage: 10 MG, QD
     Route: 048
  7. SANDOSTATIN [Suspect]
     Active Substance: OCTREOTIDE ACETATE
     Indication: CARCINOID TUMOUR
     Dosage: 100 UG, ONCE/SINGLE (TEST DOSE)
     Route: 058
     Dates: start: 20160208, end: 20160208

REACTIONS (16)
  - Mood swings [Unknown]
  - Fatigue [Recovered/Resolved]
  - Deafness unilateral [Unknown]
  - Metastasis [Unknown]
  - Bradycardia [Unknown]
  - Body temperature decreased [Unknown]
  - Malignant neoplasm progression [Unknown]
  - Asthenia [Recovered/Resolved]
  - Auditory disorder [Unknown]
  - Diarrhoea [Unknown]
  - Blood pressure systolic increased [Unknown]
  - Blood pressure increased [Unknown]
  - Blood iron decreased [Unknown]
  - Abdominal pain [Unknown]
  - Balance disorder [Unknown]
  - Vision blurred [Recovered/Resolved]

NARRATIVE: CASE EVENT DATE: 20160208
